FAERS Safety Report 14372739 (Version 3)
Quarter: 2018Q1

REPORT INFORMATION
  Report Type: Spontaneous
  Country: DE (occurrence: DE)
  Receive Date: 20180110
  Receipt Date: 20180209
  Transmission Date: 20180509
  Serious: Yes (Hospitalization, Other)
  Sender: FDA-Public Use
  Company Number: DE-B.I. PHARMACEUTICALS,INC./RIDGEFIELD-2018-BI-001516

PATIENT
  Age: 85 Year
  Sex: Male

DRUGS (1)
  1. PRADAXA [Suspect]
     Active Substance: DABIGATRAN ETEXILATE MESYLATE
     Indication: ATRIAL FIBRILLATION
     Route: 065

REACTIONS (12)
  - Dysphagia [Unknown]
  - Infection [Unknown]
  - Cerebrovascular accident [Unknown]
  - Carotid artery occlusion [Unknown]
  - Pneumonia aspiration [Unknown]
  - Pulse absent [Unknown]
  - Peripheral artery occlusion [Recovering/Resolving]
  - Basal ganglia stroke [Unknown]
  - Iliac artery occlusion [Recovering/Resolving]
  - Cerebral artery occlusion [Unknown]
  - Renal failure [Unknown]
  - Dehydration [Unknown]
